FAERS Safety Report 10647922 (Version 1)
Quarter: 2014Q4

REPORT INFORMATION
  Report Type: Spontaneous
  Country: US (occurrence: None)
  Receive Date: 20141211
  Receipt Date: 20141211
  Transmission Date: 20150529
  Serious: No
  Sender: FDA-Public Use
  Company Number: None

PATIENT

DRUGS (2)
  1. LIDOCAINE HCL [Suspect]
     Active Substance: LIDOCAINE HYDROCHLORIDE
     Dosage: SOLUTION, INJECTION 1 %
     Route: 050
  2. FORMALIN [Suspect]
     Active Substance: FORMALDEHYDE
     Dosage: INJECTION
     Route: 050

REACTIONS (3)
  - Wrong technique in drug usage process [None]
  - Wrong drug administered [None]
  - Pain [None]
